FAERS Safety Report 18117519 (Version 1)
Quarter: 2020Q3

REPORT INFORMATION
  Report Type: Spontaneous
  Country: US (occurrence: US)
  Receive Date: 20200805
  Receipt Date: 20200805
  Transmission Date: 20201103
  Serious: No
  Sender: FDA-Public Use
  Company Number: None

PATIENT
  Age: 8 Year
  Sex: Male
  Weight: 31.19 kg

DRUGS (2)
  1. MULTIVITAMIN (KID^S) [Concomitant]
  2. METHYLPHENIDATE ER CD [Suspect]
     Active Substance: METHYLPHENIDATE HYDROCHLORIDE
     Indication: ATTENTION DEFICIT HYPERACTIVITY DISORDER
     Route: 048
     Dates: start: 20200605, end: 20200703

REACTIONS (3)
  - Product quality issue [None]
  - Hunger [None]
  - Abnormal behaviour [None]

NARRATIVE: CASE EVENT DATE: 20200605
